FAERS Safety Report 5897433-3 (Version None)
Quarter: 2008Q3

REPORT INFORMATION
  Report Type: 
  Country: None (occurrence: None)
  Receive Date: 20080902
  Receipt Date: 20080714
  Transmission Date: 20090109
  Serious: Yes (Other)
  Sender: FDA-Public Use
  Company Number: 174463USA

PATIENT
  Age: 55 Year
  Sex: Male

DRUGS (2)
  1. PAROXETINE HYDROCHLORIDE [Suspect]
     Indication: MAJOR DEPRESSION
     Dosage: 40 MG, (40 MG,1 IN 1 D),ORAL
     Route: 048
     Dates: start: 20080115, end: 20080304
  2. DULOXETINE HYDROCHLORIDE [Concomitant]

REACTIONS (2)
  - DRUG WITHDRAWAL SYNDROME [None]
  - RASH [None]
